FAERS Safety Report 10013906 (Version 2)
Quarter: 2014Q1

REPORT INFORMATION
  Report Type: Spontaneous
  Country: US (occurrence: US)
  Receive Date: 20140316
  Receipt Date: 20140316
  Transmission Date: 20141002
  Serious: Yes (Other)
  Sender: FDA-Public Use
  Company Number: US-LUNDBECK-DKLU1095735

PATIENT
  Age: 4 Year
  Sex: Female

DRUGS (13)
  1. ONFI [Suspect]
     Indication: CONVULSION
  2. ONFI [Suspect]
  3. ONFI [Suspect]
  4. ONFI [Suspect]
  5. ONFI [Suspect]
  6. SABRIL (FOR ORAL SOLUTION) [Suspect]
     Indication: EPILEPSY
     Dates: start: 20110708
  7. SABRIL (FOR ORAL SOLUTION) [Suspect]
     Indication: COMPLEX PARTIAL SEIZURES
  8. KLONOPIN [Concomitant]
     Indication: PRODUCT USED FOR UNKNOWN INDICATION
  9. BANZEL [Concomitant]
     Indication: PRODUCT USED FOR UNKNOWN INDICATION
  10. BANZEL [Concomitant]
  11. BANZEL [Concomitant]
  12. TRILEPTAL [Concomitant]
     Indication: PRODUCT USED FOR UNKNOWN INDICATION
  13. VALIUM [Concomitant]
     Indication: PRODUCT USED FOR UNKNOWN INDICATION

REACTIONS (1)
  - Pneumonia [Recovered/Resolved]
